FAERS Safety Report 12220020 (Version 1)
Quarter: 2016Q1

REPORT INFORMATION
  Report Type: Report from Study
  Country: VE (occurrence: VE)
  Receive Date: 20160330
  Receipt Date: 20160330
  Transmission Date: 20160526
  Serious: Yes (Death, Other)
  Sender: FDA-Public Use
  Company Number: VE-ROCHE-656210

PATIENT

DRUGS (1)
  1. BEVACIZUMAB [Suspect]
     Active Substance: BEVACIZUMAB
     Indication: DIABETIC RETINAL OEDEMA
     Dosage: DOSE- 1.25 MG OR 2.5 MG
     Route: 050

REACTIONS (12)
  - Cerebrovascular accident [Unknown]
  - Cataract [Unknown]
  - Vitreous haemorrhage [Unknown]
  - Off label use [Unknown]
  - Death [Fatal]
  - Retinal detachment [Unknown]
  - Intraocular pressure increased [Unknown]
  - Uveitis [Unknown]
  - Myocardial infarction [Unknown]
  - Endophthalmitis [Unknown]
  - Hypertension [Unknown]
  - Glaucoma [Unknown]
